FAERS Safety Report 10016796 (Version 2)
Quarter: 2014Q1

REPORT INFORMATION
  Report Type: Spontaneous
  Country: US (occurrence: US)
  Receive Date: 20140318
  Receipt Date: 20140318
  Transmission Date: 20141002
  Serious: Yes (Other)
  Sender: FDA-Public Use
  Company Number: CHPA2011US017393

PATIENT
  Age: 71 Year
  Sex: Male

DRUGS (2)
  1. VOLTAREN GEL [Suspect]
     Indication: CALCINOSIS
     Dosage: AS PRESCRIBED
     Route: 061
  2. VICODIN [Concomitant]
     Indication: PAIN

REACTIONS (7)
  - Exostosis [Unknown]
  - Musculoskeletal disorder [Unknown]
  - Tendon disorder [Unknown]
  - Blood glucose increased [Unknown]
  - Off label use [Unknown]
  - Therapeutic response unexpected [Unknown]
  - Drug administered at inappropriate site [Unknown]
